FAERS Safety Report 7875901-2 (Version None)
Quarter: 2011Q4

REPORT INFORMATION
  Report Type: 
  Country: None (occurrence: None)
  Receive Date: 20111031
  Receipt Date: 20111026
  Transmission Date: 20120403
  Serious: Yes (Hospitalization)
  Sender: FDA-Public Use
  Company Number: JP-B.I. PHARMACEUTICALS,INC./RIDGEFIELD-2011-BP-23194NB

PATIENT
  Sex: Male
  Weight: 64 kg

DRUGS (7)
  1. MICARDIS [Concomitant]
     Indication: HYPERTENSION
     Dosage: 20 MG
     Route: 048
     Dates: start: 20100406, end: 20110816
  2. PRADAXA [Suspect]
     Indication: ATRIAL FIBRILLATION
     Dosage: 220 MG
     Route: 048
     Dates: start: 20110720, end: 20110914
  3. LANSOPRAZOLE [Concomitant]
     Indication: GASTRITIS PROPHYLAXIS
     Dosage: 15 MG
     Route: 048
     Dates: start: 20100406
  4. EVIPROSTAT [Concomitant]
     Indication: BENIGN PROSTATIC HYPERPLASIA
     Route: 048
  5. ASPIRIN [Suspect]
     Indication: CEREBELLAR INFARCTION
     Dosage: 100 MG
     Route: 048
     Dates: start: 20100406, end: 20110914
  6. HARNAL D [Concomitant]
     Indication: BENIGN PROSTATIC HYPERPLASIA
     Dosage: 0.2 MG
     Route: 048
  7. MICAMLO COMBINATION TABLETS AP [Concomitant]
     Indication: HYPERTENSION
     Route: 048
     Dates: start: 20110817

REACTIONS (4)
  - GASTRIC HAEMORRHAGE [None]
  - OCCULT BLOOD [None]
  - INTESTINAL POLYP HAEMORRHAGE [None]
  - ANAEMIA [None]
